FAERS Safety Report 14617330 (Version 8)
Quarter: 2019Q1

REPORT INFORMATION
  Report Type: Report from Study
  Country: US (occurrence: US)
  Receive Date: 20180309
  Receipt Date: 20190305
  Transmission Date: 20190417
  Serious: No
  Sender: FDA-Public Use
  Company Number: PHEH2018US009356

PATIENT
  Age: 76 Year
  Sex: Female
  Weight: 54.8 kg

DRUGS (1)
  1. COSENTYX [Suspect]
     Active Substance: SECUKINUMAB
     Indication: PSORIATIC ARTHROPATHY
     Dosage: 150 MG, QMO
     Route: 058
     Dates: start: 20171024

REACTIONS (10)
  - Rash macular [Unknown]
  - Abdominal pain upper [Unknown]
  - Pruritus generalised [Not Recovered/Not Resolved]
  - Wound [Unknown]
  - Vomiting [Unknown]
  - Pruritus [Unknown]
  - Skin swelling [Unknown]
  - Rash [Unknown]
  - Diarrhoea [Unknown]
  - Nausea [Unknown]

NARRATIVE: CASE EVENT DATE: 20180827
